FAERS Safety Report 4804938-2 (Version None)
Quarter: 2005Q4

REPORT INFORMATION
  Report Type: 
  Country: None (occurrence: None)
  Receive Date: 20051017
  Receipt Date: 20051006
  Transmission Date: 20060501
  Serious: Yes (Other)
  Sender: FDA-Public Use
  Company Number: A-CH2005-10771

PATIENT
  Age: 66 Year
  Sex: Female

DRUGS (10)
  1. TRACLEER [Suspect]
     Indication: PULMONARY HYPERTENSION
     Dosage: 62.5 MG, BID, ORAL
     Route: 048
     Dates: start: 20050511, end: 20050908
  2. SILDENAFIL CITRATE [Concomitant]
  3. OMEPRAZOLE [Concomitant]
  4. FUROSEMIDE [Concomitant]
  5. OXYGEN (OXYGEN) [Concomitant]
  6. FORMOTEROL (FORMOTEROL) [Concomitant]
  7. DIGOXIN [Concomitant]
  8. SPIRONOLACTONE [Concomitant]
  9. TIOTROPIUM BROMIDE [Concomitant]
  10. RISEDRONIC ACID (RISEDRONIC ACID) [Concomitant]

REACTIONS (1)
  - CHOLESTASIS [None]
